FAERS Safety Report 6493740-4 (Version None)
Quarter: 2009Q4

REPORT INFORMATION
  Report Type: 
  Country: None (occurrence: None)
  Receive Date: 20091214
  Receipt Date: 20090619
  Transmission Date: 20100525
  Serious: No
  Sender: FDA-Public Use
  Company Number: US-BRISTOL-MYERS SQUIBB COMPANY-13731393

PATIENT
  Age: 26 Year
  Sex: Female
  Weight: 63 kg

DRUGS (4)
  1. ABILIFY [Suspect]
     Indication: OBSESSIVE-COMPULSIVE DISORDER
     Dates: start: 20030601, end: 20041201
  2. ZOLOFT [Concomitant]
  3. PROZAC [Concomitant]
  4. PAXIL [Concomitant]

REACTIONS (5)
  - CONSTIPATION [None]
  - DRUG INEFFECTIVE [None]
  - NAUSEA [None]
  - SEDATION [None]
  - VOMITING [None]
